FAERS Safety Report 25509993 (Version 1)
Quarter: 2025Q3

REPORT INFORMATION
  Report Type: Spontaneous
  Country: US (occurrence: US)
  Receive Date: 20250703
  Receipt Date: 20250703
  Transmission Date: 20251020
  Serious: No
  Sender: BRISTOL-MYERS SQUIBB COMPANY
  Company Number: US-BRISTOL-MYERS SQUIBB COMPANY-2025-093414

PATIENT
  Age: 71 Year
  Sex: Female
  Weight: 58.06 kg

DRUGS (1)
  1. ELIQUIS [Suspect]
     Active Substance: APIXABAN
     Indication: Thrombosis prophylaxis

REACTIONS (5)
  - Confusional state [Unknown]
  - Nightmare [Unknown]
  - Haemorrhage [Unknown]
  - Memory impairment [Unknown]
  - Off label use [Unknown]
